FAERS Safety Report 10850585 (Version 1)
Quarter: 2015Q1

REPORT INFORMATION
  Report Type: Spontaneous
  Country: US (occurrence: US)
  Receive Date: 20150222
  Receipt Date: 20150222
  Transmission Date: 20150721
  Serious: No
  Sender: FDA-Public Use
  Company Number: US-ALLERGAN-1403580US

PATIENT
  Sex: Female

DRUGS (1)
  1. BOTOX [Suspect]
     Active Substance: ONABOTULINUMTOXINA
     Indication: DYSPHONIA

REACTIONS (5)
  - Off label use [Unknown]
  - Neck pain [Unknown]
  - Affective disorder [Unknown]
  - Therapeutic response decreased [Unknown]
  - Dysphonia [Unknown]
